FAERS Safety Report 4973745-2 (Version None)
Quarter: 2006Q2

REPORT INFORMATION
  Report Type: 
  Country: None (occurrence: None)
  Receive Date: 20060414
  Receipt Date: 20051205
  Transmission Date: 20061013
  Serious: Yes (Hospitalization)
  Sender: FDA-Public Use
  Company Number: US-MERCK-0512USA00823

PATIENT
  Age: 57 Year
  Sex: Male
  Weight: 90 kg

DRUGS (9)
  1. VIOXX [Suspect]
     Indication: ARTHRITIS
     Route: 048
     Dates: start: 20020101, end: 20041106
  2. VIOXX [Suspect]
     Indication: OSTEOARTHRITIS
     Route: 048
     Dates: start: 20020101, end: 20041106
  3. DIOVAN [Concomitant]
     Indication: HYPERTENSION
     Route: 065
     Dates: start: 20030101
  4. DIOVAN [Concomitant]
     Indication: CARDIAC DISORDER
     Route: 065
     Dates: start: 20030101
  5. ALLOPURINOL [Concomitant]
     Indication: PAIN
     Route: 065
     Dates: start: 20030101
  6. ALLOPURINOL [Concomitant]
     Indication: GOUT
     Route: 065
     Dates: start: 20030101
  7. AMARYL [Concomitant]
     Indication: DIABETES MELLITUS
     Route: 065
  8. AMIODARONE [Concomitant]
     Indication: HYPERTENSION
     Route: 065
     Dates: start: 20030101
  9. PREDNISONE [Concomitant]
     Indication: ARTHRITIS
     Route: 065
     Dates: start: 20030101

REACTIONS (14)
  - ANGINA PECTORIS [None]
  - CARDIOMYOPATHY [None]
  - CATHETER RELATED COMPLICATION [None]
  - CORONARY ARTERY DISEASE [None]
  - DIABETES MELLITUS [None]
  - DIZZINESS [None]
  - GOUT [None]
  - HAEMATOMA [None]
  - HYPERTENSION [None]
  - MYOCARDIAL INFARCTION [None]
  - RENAL FAILURE ACUTE [None]
  - RENAL FAILURE CHRONIC [None]
  - SYNCOPE [None]
  - VIRAL INFECTION [None]
